FAERS Safety Report 9667605 (Version 3)
Quarter: 2014Q1

REPORT INFORMATION
  Report Type: Spontaneous
  Country: US (occurrence: US)
  Receive Date: 20131104
  Receipt Date: 20140213
  Transmission Date: 20141002
  Serious: Yes (Hospitalization)
  Sender: FDA-Public Use
  Company Number: US-LUNDBECK-DKLU1094374

PATIENT
  Age: 0 Year
  Sex: Female
  Weight: 7 kg

DRUGS (10)
  1. SABRIL (FOR ORAL SOLUTION) [Suspect]
     Indication: INFANTILE SPASMS
     Route: 048
  2. SABRIL (FOR ORAL SOLUTION) [Suspect]
     Route: 048
  3. SABRIL (FOR ORAL SOLUTION) [Suspect]
     Route: 048
     Dates: start: 20130926, end: 20131020
  4. SABRIL (FOR ORAL SOLUTION) [Suspect]
     Dates: start: 20131014
  5. ACTH [Suspect]
     Indication: PRODUCT USED FOR UNKNOWN INDICATION
  6. TOPAMAX [Concomitant]
     Indication: PRODUCT USED FOR UNKNOWN INDICATION
  7. PRELONE [Concomitant]
     Indication: PRODUCT USED FOR UNKNOWN INDICATION
  8. NORVASC [Concomitant]
     Indication: PRODUCT USED FOR UNKNOWN INDICATION
  9. PREDNISOLE [Concomitant]
     Indication: PRODUCT USED FOR UNKNOWN INDICATION
  10. ZONEGRAN [Concomitant]
     Indication: PRODUCT USED FOR UNKNOWN INDICATION

REACTIONS (9)
  - Gastroenteritis [Unknown]
  - Hypertension [Unknown]
  - Convulsion [Unknown]
  - Haematuria [Unknown]
  - Tympanic membrane perforation [Unknown]
  - Irritability [Unknown]
  - Somnolence [Not Recovered/Not Resolved]
  - Otitis media acute [Recovered/Resolved]
  - Upper respiratory tract infection [Unknown]
